FAERS Safety Report 7517077-7 (Version None)
Quarter: 2011Q2

REPORT INFORMATION
  Report Type: 
  Country: None (occurrence: None)
  Receive Date: 20110526
  Receipt Date: 20110526
  Transmission Date: 20111010
  Serious: No
  Sender: FDA-Public Use
  Company Number: None

PATIENT
  Age: 72 Year
  Sex: Female
  Weight: 86.1834 kg

DRUGS (2)
  1. PHENAZOPYRIDINE HCL TAB [Suspect]
     Indication: RENAL DISORDER
     Dosage: 5 DAY DOSAGES
  2. PHENAZOPYRIDINE HCL TAB [Suspect]
     Indication: BLADDER DISORDER
     Dosage: 5 DAY DOSAGES

REACTIONS (1)
  - PRODUCT LABEL ISSUE [None]
